FAERS Safety Report 8434294-2 (Version None)
Quarter: 2012Q2

REPORT INFORMATION
  Report Type: 
  Country: None (occurrence: None)
  Receive Date: 20120613
  Receipt Date: 20120606
  Transmission Date: 20120825
  Serious: Yes (Life-Threatening)
  Sender: FDA-Public Use
  Company Number: JP-FRI-1000030751

PATIENT
  Sex: Male

DRUGS (11)
  1. MEMANTINE HCL [Suspect]
     Indication: DEMENTIA
     Dosage: 10 MG
     Route: 048
     Dates: start: 20120428, end: 20120509
  2. MEMANTINE HCL [Suspect]
  3. ARICEPT [Suspect]
     Indication: DEMENTIA
     Dosage: 5 MG
     Route: 048
     Dates: start: 20120406, end: 20120509
  4. MEMANTINE HCL [Suspect]
     Dosage: 15 MG
     Route: 048
     Dates: start: 20120510, end: 20120513
  5. GRAMALIL [Concomitant]
     Indication: DEMENTIA
     Dosage: 75 MG
     Dates: start: 20120413, end: 20120513
  6. LANTUS [Concomitant]
     Indication: DIABETES MELLITUS
     Dosage: 4 IU
     Route: 058
     Dates: start: 20120421, end: 20120428
  7. NOCBIN [Concomitant]
     Indication: ALCOHOLISM
     Dosage: 0.2 G
     Dates: start: 20120113, end: 20120513
  8. ARICEPT [Suspect]
     Dosage: 10 MG
     Dates: start: 20120510, end: 20120513
  9. URSO 250 [Concomitant]
     Indication: CHRONIC HEPATITIS
     Dosage: 300 MG
     Dates: start: 20120113, end: 20120513
  10. GLIMICRON [Concomitant]
     Indication: DIABETES MELLITUS
     Dosage: 40 MG
     Route: 048
     Dates: start: 20120429, end: 20120512
  11. REBAMIPIDE [Concomitant]
     Indication: GASTRITIS
     Dates: start: 20120113, end: 20120513

REACTIONS (1)
  - STATUS EPILEPTICUS [None]
